FAERS Safety Report 21910939 (Version 1)
Quarter: 2023Q1

REPORT INFORMATION
  Report Type: Spontaneous
  Country: US (occurrence: US)
  Receive Date: 20230125
  Receipt Date: 20230125
  Transmission Date: 20230418
  Serious: No
  Sender: FDA-Public Use
  Company Number: US-ALLERGAN-2207971US

PATIENT
  Age: 59 Year
  Sex: Female

DRUGS (3)
  1. BOTOX [Suspect]
     Active Substance: ONABOTULINUMTOXINA
     Indication: Migraine
     Dosage: UNK UNK, SINGLE
     Route: 030
     Dates: start: 20210914, end: 20210914
  2. APRACLONIDINE [Suspect]
     Active Substance: APRACLONIDINE HYDROCHLORIDE
     Indication: Eyelid ptosis
     Dosage: 2 GTT IN RIGHT EYE, 0.5 PERCENT
     Route: 047
  3. IMITREX [Concomitant]
     Active Substance: SUMATRIPTAN SUCCINATE
     Indication: Migraine
     Dosage: UNK
     Route: 048

REACTIONS (3)
  - Visual impairment [Recovering/Resolving]
  - Infection [Recovered/Resolved]
  - Eyelid ptosis [Recovered/Resolved with Sequelae]

NARRATIVE: CASE EVENT DATE: 20210918
